FAERS Safety Report 20598809 (Version 2)
Quarter: 2022Q1

REPORT INFORMATION
  Report Type: Report from Study
  Country: CA (occurrence: CA)
  Receive Date: 20220315
  Receipt Date: 20220321
  Transmission Date: 20220423
  Serious: Yes (Other)
  Sender: FDA-Public Use
  Company Number: CA-ORGANON-1805CAN002739

PATIENT
  Age: 36 Year
  Sex: Female

DRUGS (4)
  1. FOLLITROPIN BETA [Suspect]
     Active Substance: FOLLITROPIN BETA
     Indication: In vitro fertilisation
     Dosage: 300 INTERNATIONAL UNIT
  2. FOLLITROPIN BETA [Suspect]
     Active Substance: FOLLITROPIN BETA
     Dosage: 900 INTERNATIONAL UNIT
     Dates: start: 201804, end: 201804
  3. PREGNYL [Suspect]
     Active Substance: CHORIOGONADOTROPIN ALFA
     Indication: In vitro fertilisation
     Dosage: 10000 U
     Dates: start: 201804, end: 201804
  4. ORGALUTRAN [Suspect]
     Active Substance: GANIRELIX ACETATE
     Indication: In vitro fertilisation
     Dosage: 250MCG/0.5 ML
     Dates: start: 201804, end: 201804

REACTIONS (2)
  - Stillbirth [Recovered/Resolved]
  - Failed in vitro fertilisation [Not Recovered/Not Resolved]

NARRATIVE: CASE EVENT DATE: 20190101
